FAERS Safety Report 8271378-6 (Version None)
Quarter: 2012Q2

REPORT INFORMATION
  Report Type: 
  Country: None (occurrence: None)
  Receive Date: 20120410
  Receipt Date: 20120215
  Transmission Date: 20120825
  Serious: No
  Sender: FDA-Public Use
  Company Number: US-NOVEN-12US004106

PATIENT
  Sex: Female

DRUGS (3)
  1. FLEXERIL [Concomitant]
     Indication: MUSCLE SPASMS
     Dosage: UNK
     Route: 048
  2. FENTANYL CITRATE [Suspect]
     Indication: PAIN
     Dosage: 75 UG/HR
     Route: 062
     Dates: start: 20110101
  3. OXYCODONE HCL [Concomitant]
     Indication: PAIN
     Dosage: UNK
     Route: 048

REACTIONS (2)
  - APPLICATION SITE PRURITUS [None]
  - APPLICATION SITE ERYTHEMA [None]
